FAERS Safety Report 5093866-6 (Version None)
Quarter: 2006Q3

REPORT INFORMATION
  Report Type: 
  Country: None (occurrence: None)
  Receive Date: 20060831
  Receipt Date: 20060822
  Transmission Date: 20061208
  Serious: Yes (Other)
  Sender: FDA-Public Use
  Company Number: MY-BRISTOL-MYERS SQUIBB COMPANY-13485198

PATIENT
  Age: 49 Year
  Sex: Female

DRUGS (4)
  1. FUNGIZONE [Suspect]
     Indication: FUNGAL INFECTION
     Route: 048
  2. GASTRIL [Suspect]
     Indication: STRESS ULCER
     Route: 048
  3. FORTUM [Suspect]
     Indication: FUNGAL INFECTION
     Route: 048
  4. CEFEPIME [Concomitant]

REACTIONS (2)
  - ANAEMIA [None]
  - THROMBOCYTOPENIA [None]
